FAERS Safety Report 8365922-8 (Version None)
Quarter: 2012Q2

REPORT INFORMATION
  Report Type: 
  Country: None (occurrence: None)
  Receive Date: 20120515
  Receipt Date: 20120515
  Transmission Date: 20120825
  Serious: Yes (Death)
  Sender: FDA-Public Use
  Company Number: None

PATIENT
  Age: 85 Year
  Sex: Female
  Weight: 79 kg

DRUGS (7)
  1. LISINOPRIL [Concomitant]
  2. LEVOTHYROXINE SODIUM [Concomitant]
  3. XARELTO [Suspect]
     Indication: ATRIAL FIBRILLATION
     Dosage: 15 MG DAILY PO
     Route: 048
     Dates: start: 20120118, end: 20120211
  4. VITAMIN D [Concomitant]
  5. DIGOXIN [Concomitant]
  6. TOPROL-XL [Concomitant]
  7. ALDACTONE [Concomitant]

REACTIONS (4)
  - COAGULOPATHY [None]
  - MENTAL STATUS CHANGES [None]
  - HAEMORRHAGIC STROKE [None]
  - IATROGENIC INJURY [None]
